FAERS Safety Report 23945060 (Version 1)
Quarter: 2024Q2

REPORT INFORMATION
  Report Type: Spontaneous
  Country: ES (occurrence: ES)
  Receive Date: 20240606
  Receipt Date: 20240606
  Transmission Date: 20240715
  Serious: Yes (Hospitalization)
  Sender: FDA-Public Use
  Company Number: ES-ALKEM LABORATORIES LIMITED-ES-ALKEM-2024-03919

PATIENT
  Age: 72 Year
  Sex: Female

DRUGS (2)
  1. OLMESARTAN [Suspect]
     Active Substance: OLMESARTAN
     Indication: Hypertension
     Dosage: 40 MILLIGRAM, QD
     Route: 065
  2. OLMESARTAN [Suspect]
     Active Substance: OLMESARTAN
     Dosage: UNK (REINTRODUCED)
     Route: 065

REACTIONS (1)
  - Sprue-like enteropathy [Recovered/Resolved]
